FAERS Safety Report 8024683-2 (Version None)
Quarter: 2011Q4

REPORT INFORMATION
  Report Type: 
  Country: None (occurrence: None)
  Receive Date: 20111130
  Receipt Date: 20110421
  Transmission Date: 20120403
  Serious: Yes (Hospitalization)
  Sender: FDA-Public Use
  Company Number: PHHY2011US09870

PATIENT
  Age: 60 Year
  Sex: Male

DRUGS (15)
  1. ENALAPRIL MALEATE [Suspect]
  2. ALPRAZOLAM [Suspect]
  3. CLONIDINE [Suspect]
  4. AMLODIPINE [Suspect]
  5. ACIPHEX [Suspect]
  6. COREG [Suspect]
  7. HYDROCHLOROTHIAZIDE [Suspect]
     Dosage: ORAL
     Route: 048
  8. MICARDIS [Suspect]
  9. LABETALOL HCL [Suspect]
  10. BYSTOLIC [Suspect]
  11. ATENOLOL [Suspect]
  12. TEKTURNA [Suspect]
     Dosage: 300 MG, QD ; 150 MG, ONCE DAILY, ORAL
  13. SULAR [Suspect]
  14. LISINOPRIL [Suspect]
  15. CADUAP () [Suspect]

REACTIONS (9)
  - ABDOMINAL DISCOMFORT [None]
  - MALAISE [None]
  - DYSPNOEA [None]
  - HYPERSENSITIVITY [None]
  - FLATULENCE [None]
  - PRURITUS [None]
  - RASH [None]
  - CONSTIPATION [None]
  - SEDATION [None]
